FAERS Safety Report 11717043 (Version 3)
Quarter: 2015Q4

REPORT INFORMATION
  Report Type: Spontaneous
  Country: US (occurrence: US)
  Receive Date: 20151104
  Receipt Date: 20151120
  Transmission Date: 20160304
  Serious: No
  Sender: FDA-Public Use
  Company Number: US-ELI_LILLY_AND_COMPANY-US201104006222

PATIENT
  Age: 81 Year
  Sex: Female

DRUGS (7)
  1. FORTEO [Suspect]
     Active Substance: TERIPARATIDE
     Dosage: 20 UG, QD
  2. MIRALAX [Concomitant]
     Active Substance: POLYETHYLENE GLYCOL 3350
     Dosage: UNK, UNKNOWN
  3. FORTEO [Suspect]
     Active Substance: TERIPARATIDE
     Indication: OSTEOPOROSIS
     Dosage: 20 UG, QD
     Dates: start: 20110317
  4. MIRALAX [Concomitant]
     Active Substance: POLYETHYLENE GLYCOL 3350
     Dosage: UNK, BID
  5. FORTEO [Suspect]
     Active Substance: TERIPARATIDE
     Dosage: 20 UG, QD
  6. FORTEO [Suspect]
     Active Substance: TERIPARATIDE
     Dosage: 20 UG, QD
  7. FORTEO [Suspect]
     Active Substance: TERIPARATIDE
     Dosage: 20 UG, QD

REACTIONS (20)
  - Sleep disorder due to a general medical condition [Unknown]
  - Pain [Recovering/Resolving]
  - Drug dose omission [Unknown]
  - Fatigue [Recovered/Resolved]
  - Malaise [Unknown]
  - Asthenia [Recovered/Resolved]
  - Muscle spasms [Not Recovered/Not Resolved]
  - Vertigo positional [Recovered/Resolved]
  - Pain [Not Recovered/Not Resolved]
  - Muscle twitching [Unknown]
  - Fear [Unknown]
  - Pain in extremity [Unknown]
  - Anxiety [Recovered/Resolved]
  - Back pain [Unknown]
  - Pain [Recovered/Resolved]
  - Pain in extremity [Not Recovered/Not Resolved]
  - Decreased appetite [Unknown]
  - Jaw disorder [Unknown]
  - Arthralgia [Not Recovered/Not Resolved]
  - Constipation [Recovering/Resolving]

NARRATIVE: CASE EVENT DATE: 20120630
